FAERS Safety Report 12478968 (Version 1)
Quarter: 2016Q2

REPORT INFORMATION
  Report Type: Spontaneous
  Country: PT (occurrence: PT)
  Receive Date: 20160620
  Receipt Date: 20160620
  Transmission Date: 20160815
  Serious: Yes (Other)
  Sender: FDA-Public Use
  Company Number: PT-PAR PHARMACEUTICAL COMPANIES-2016SCPR015543

PATIENT

DRUGS (5)
  1. LEVETIRACETAM. [Suspect]
     Active Substance: LEVETIRACETAM
     Indication: EPILEPSY
     Dosage: UNK UNK, UNKNOWN
     Route: 065
  2. FENYTOIN [Suspect]
     Active Substance: PHENYTOIN
     Indication: EPILEPSY
     Dosage: UNK UNK, UNKNOWN
     Route: 065
  3. CARBAMAZEPINE. [Suspect]
     Active Substance: CARBAMAZEPINE
     Indication: EPILEPSY
     Dosage: 45 MG/KG / DAY
     Route: 065
  4. PREGABALINE [Suspect]
     Active Substance: PREGABALIN
     Indication: EPILEPSY
     Dosage: 8 MG/KG / DAY
     Route: 065
  5. LAMOTRIGINE. [Suspect]
     Active Substance: LAMOTRIGINE
     Indication: EPILEPSY
     Dosage: 8 MG/KG / DAY
     Route: 065

REACTIONS (2)
  - Hallucination, auditory [Recovered/Resolved]
  - Hallucination, tactile [Recovered/Resolved]
